FAERS Safety Report 4875230-5 (Version None)
Quarter: 2006Q1

REPORT INFORMATION
  Report Type: 
  Country: None (occurrence: None)
  Receive Date: 20060109
  Receipt Date: 20050914
  Transmission Date: 20060701
  Serious: Yes (Hospitalization, Other)
  Sender: FDA-Public Use
  Company Number: US-MERCK-0509USA02115

PATIENT
  Age: 54 Week
  Sex: Female
  Weight: 90 kg

DRUGS (9)
  1. VIOXX [Suspect]
     Indication: ARTHRITIS
     Route: 048
     Dates: start: 20010101, end: 20030101
  2. LASIX [Concomitant]
     Indication: FLUID RETENTION
     Route: 065
     Dates: start: 19980101
  3. ESTRADIOL [Concomitant]
     Indication: MENOPAUSE
     Route: 065
     Dates: start: 19830101, end: 20040101
  4. NEXIUM [Concomitant]
     Route: 065
  5. K-TAB [Concomitant]
     Route: 065
  6. ADVAIR DISKUS 250/50 [Concomitant]
     Route: 065
  7. ALBUTEROL [Concomitant]
     Route: 065
  8. SOMA [Concomitant]
     Route: 065
  9. SINGULAIR [Concomitant]
     Route: 065

REACTIONS (23)
  - AGORAPHOBIA [None]
  - ANGINA PECTORIS [None]
  - ASTHENIA [None]
  - BLOOD CHOLESTEROL INCREASED [None]
  - CARDIAC FAILURE CONGESTIVE [None]
  - CHRONIC FATIGUE SYNDROME [None]
  - CHRONIC OBSTRUCTIVE PULMONARY DISEASE [None]
  - DEPRESSION [None]
  - DIABETES MELLITUS [None]
  - DIZZINESS [None]
  - DYSPHAGIA [None]
  - HEADACHE [None]
  - HEART INJURY [None]
  - INFLUENZA [None]
  - INTESTINAL OBSTRUCTION [None]
  - MYOCARDIAL INFARCTION [None]
  - OVERDOSE [None]
  - PANIC DISORDER [None]
  - PNEUMONIA [None]
  - POLYP [None]
  - SLEEP APNOEA SYNDROME [None]
  - THROMBOSIS [None]
  - TREMOR [None]
